FAERS Safety Report 5503943-0 (Version None)
Quarter: 2007Q4

REPORT INFORMATION
  Report Type: 
  Country: None (occurrence: None)
  Receive Date: 20071030
  Receipt Date: 20071030
  Transmission Date: 20080405
  Serious: Yes (Hospitalization)
  Sender: FDA-Public Use
  Company Number: None

PATIENT
  Age: 80 Year
  Sex: Female

DRUGS (1)
  1. HEPARIN [Suspect]
     Indication: HAEMODIALYSIS
     Dosage: 5000 UNITS QHD IV
     Route: 042
     Dates: start: 20070918, end: 20070918

REACTIONS (1)
  - HEPARIN-INDUCED THROMBOCYTOPENIA [None]
